FAERS Safety Report 9224177 (Version 1)
Quarter: 2013Q1

REPORT INFORMATION
  Report Type: Spontaneous
  Country: US (occurrence: None)
  Receive Date: 20120830
  Receipt Date: 20120830
  Transmission Date: 20140127
  Serious: Yes (Other)
  Sender: FDA-Public Use
  Company Number: PHEH2011US00544

PATIENT
  Sex: Female

DRUGS (1)
  1. EXFORGE (VALSARTAN, AMLODIPINE) UNKNOWN [Suspect]
     Dosage: 160MG VALS AND 5MG AMLO?

REACTIONS (5)
  - Angina pectoris [None]
  - Hypotension [None]
  - Heart rate decreased [None]
  - Heart rate irregular [None]
  - Dizziness postural [None]
